FAERS Safety Report 24557638 (Version 1)
Quarter: 2024Q4

REPORT INFORMATION
  Report Type: Spontaneous
  Country: CO (occurrence: CO)
  Receive Date: 20241028
  Receipt Date: 20241028
  Transmission Date: 20250115
  Serious: Yes (Other)
  Sender: LUNDBECK
  Company Number: CO-SA-2024SA292796

PATIENT

DRUGS (7)
  1. CLOBAZAM [Suspect]
     Active Substance: CLOBAZAM
     Indication: Epilepsy
     Dosage: 20 MG, QD
     Route: 048
     Dates: start: 20230201
  2. CLOBAZAM [Suspect]
     Active Substance: CLOBAZAM
     Dosage: 30 MG, QD (10 MG MORNING AND 20MG AT NIGHT)
     Route: 048
  3. TEGRETOL [Suspect]
     Active Substance: CARBAMAZEPINE
     Indication: Product used for unknown indication
     Dosage: 200 MG, BID
     Route: 048
     Dates: start: 2023, end: 2023
  4. MELATONIN [Concomitant]
     Active Substance: MELATONIN
     Indication: Epilepsy
     Dosage: 2 MG
     Route: 048
  5. KEPPRA [Concomitant]
     Active Substance: LEVETIRACETAM
     Indication: Epilepsy
     Dosage: 1000 MG, TID (1 DOSE EVERY 8 HOUR)
     Route: 048
  6. TOPAMAX [Concomitant]
     Active Substance: TOPIRAMATE
     Indication: Epilepsy
     Dosage: 100 MG, TID (1 DOSE EVERY 8 HOUR)
     Route: 048
  7. VIMPAT [Concomitant]
     Active Substance: LACOSAMIDE
     Indication: Epilepsy
     Dosage: 200 MG, Q12H
     Route: 048

REACTIONS (4)
  - Seizure [Not Recovered/Not Resolved]
  - Product dose omission issue [Unknown]
  - Insomnia [Not Recovered/Not Resolved]
  - Sedation [Unknown]

NARRATIVE: CASE EVENT DATE: 20230101
